FAERS Safety Report 8958113 (Version 9)
Quarter: 2013Q2

REPORT INFORMATION
  Report Type: Spontaneous
  Country: US (occurrence: US)
  Receive Date: 20121211
  Receipt Date: 20130405
  Transmission Date: 20140414
  Serious: Yes (Death, Life-Threatening, Hospitalization)
  Sender: FDA-Public Use
  Company Number: US-AMGEN-USASP2012078338

PATIENT
  Age: 66 Year
  Sex: Female
  Weight: 81.65 kg

DRUGS (10)
  1. NEULASTA [Suspect]
     Indication: BREAST CANCER
     Dosage: 6 MG, UNK
     Route: 065
     Dates: start: 20121114, end: 20130206
  2. ADO-TRASTUZUMAB EMTANSINE [Suspect]
     Indication: BREAST CANCER
     Dosage: 3.6 MG/KG, Q3WK
     Route: 042
     Dates: start: 20121113, end: 20130214
  3. DOCETAXEL [Suspect]
     Indication: BREAST CANCER
     Dosage: 100 MG/M2, Q3WK
     Route: 042
     Dates: start: 20121113
  4. DOCETAXEL [Suspect]
     Dosage: 75 MG/M2, Q3WK
     Route: 042
     Dates: start: 20121204, end: 20130214
  5. GABAPENTIN [Concomitant]
     Dosage: 300 MG, BID
     Route: 048
     Dates: start: 20121204, end: 20130225
  6. TRAMADOL [Concomitant]
     Indication: PAIN
     Dosage: 50 MG, 1 EVERY 6 HOURS WHEN REQUIRED
     Route: 048
     Dates: start: 20121204, end: 20130225
  7. HYDROCORTISONE [Concomitant]
     Dosage: 2.5% LOTION
     Route: 061
     Dates: start: 20130102, end: 20130211
  8. PROMETHAZINE [Concomitant]
     Dosage: 25 MG, UNK
     Dates: start: 20121112, end: 20130211
  9. DOXYCYCLINE [Concomitant]
     Indication: FEBRILE NEUTROPENIA
     Dosage: 100 MG, UNK
     Route: 065
     Dates: start: 20121119, end: 20121121
  10. CIPRO                              /00697202/ [Concomitant]
     Indication: FEBRILE NEUTROPENIA
     Dosage: 500 MG, UNK
     Route: 065
     Dates: start: 20121119, end: 20121119

REACTIONS (6)
  - Respiratory failure [Fatal]
  - Pneumonitis [Fatal]
  - Febrile neutropenia [Recovered/Resolved]
  - Dehydration [Recovered/Resolved]
  - Confusional state [Recovered/Resolved]
  - Viral infection [Recovered/Resolved]
